FAERS Safety Report 23189468 (Version 2)
Quarter: 2024Q1

REPORT INFORMATION
  Report Type: Report from Study
  Country: US (occurrence: US)
  Receive Date: 20231116
  Receipt Date: 20240207
  Transmission Date: 20240410
  Serious: Yes (Other)
  Sender: FDA-Public Use
  Company Number: US-ABBVIE-5491255

PATIENT
  Age: 61 Year
  Sex: Male
  Weight: 77 kg

DRUGS (4)
  1. HUMIRA [Suspect]
     Active Substance: ADALIMUMAB
     Indication: Psoriasis
     Route: 058
     Dates: start: 20091101
  2. CELEBREX [Concomitant]
     Active Substance: CELECOXIB
     Indication: Arthritis
  3. AMLODIPINE [Concomitant]
     Active Substance: AMLODIPINE BESYLATE
     Indication: Hypertension
  4. LOSARTAN [Concomitant]
     Active Substance: LOSARTAN
     Indication: Hypertension

REACTIONS (5)
  - Melanoma recurrent [Unknown]
  - Malignant melanoma [Recovered/Resolved]
  - Basal cell carcinoma [Unknown]
  - Squamous cell carcinoma [Unknown]
  - Skin cancer [Recovered/Resolved]

NARRATIVE: CASE EVENT DATE: 20091101
